FAERS Safety Report 25902355 (Version 3)
Quarter: 2025Q4

REPORT INFORMATION
  Report Type: Report from Study
  Country: BR (occurrence: BR)
  Receive Date: 20251009
  Receipt Date: 20251221
  Transmission Date: 20260117
  Serious: Yes (Other)
  Sender: JOHNSON AND JOHNSON
  Company Number: BR-JNJFOC-20250947589

PATIENT
  Age: 37 Year
  Sex: Female
  Weight: 61 kg

DRUGS (7)
  1. GOLIMUMAB [Suspect]
     Active Substance: GOLIMUMAB
     Indication: Ankylosing spondylitis
     Route: 058
  2. GOLIMUMAB [Suspect]
     Active Substance: GOLIMUMAB
  3. GOLIMUMAB [Suspect]
     Active Substance: GOLIMUMAB
     Indication: Ankylosing spondylitis
     Route: 058
  4. GOLIMUMAB [Suspect]
     Active Substance: GOLIMUMAB
  5. GOLIMUMAB [Suspect]
     Active Substance: GOLIMUMAB
  6. SIMPONI [Suspect]
     Active Substance: GOLIMUMAB
     Indication: Ankylosing spondylitis
     Route: 058
  7. SIMPONI [Suspect]
     Active Substance: GOLIMUMAB

REACTIONS (9)
  - Ankylosing spondylitis [Not Recovered/Not Resolved]
  - Product dose omission issue [Unknown]
  - Anxiety [Not Recovered/Not Resolved]
  - Fibromyalgia [Unknown]
  - Gastritis [Unknown]
  - Helicobacter infection [Unknown]
  - Depression [Unknown]
  - Memory impairment [Unknown]
  - Product dispensing error [Unknown]

NARRATIVE: CASE EVENT DATE: 20251124
